FAERS Safety Report 6673516 (Version 3)
Quarter: 2017Q3

REPORT INFORMATION
  Report Type: Spontaneous
  Country: US (occurrence: US)
  Receive Date: 20080620
  Receipt Date: 20170918
  Transmission Date: 20171128
  Serious: Yes (Other)
  Sender: FDA-Public Use
  Company Number: US-BAYER-200825378NA

PATIENT
  Age: 45 Year
  Sex: Female
  Weight: 52 kg

DRUGS (27)
  1. MAGNEVIST [Suspect]
     Active Substance: GADOPENTETATE DIMEGLUMINE
     Indication: NUCLEAR MAGNETIC RESONANCE IMAGING
     Dosage: 30 ML, ONCE
     Dates: start: 20040726, end: 20040726
  2. PROHANCE [Suspect]
     Active Substance: GADOTERIDOL
     Indication: NUCLEAR MAGNETIC RESONANCE IMAGING
     Dosage: UNK
  3. PLAQUENIL [Concomitant]
     Active Substance: HYDROXYCHLOROQUINE SULFATE
  4. NEPHROCAPS [Concomitant]
     Active Substance: ASCORBIC ACID\BIOTIN\CYANOCOBALAMIN\FOLIC ACID\NIACIN\PANTOTHENIC ACID\PYRIDOXINE\RIBOFLAVIN\THIAMINE
  5. PREDNISONE. [Concomitant]
     Active Substance: PREDNISONE
  6. LEVOCARNITINE. [Concomitant]
     Active Substance: LEVOCARNITINE
  7. PROHANCE [Suspect]
     Active Substance: GADOTERIDOL
     Indication: NUCLEAR MAGNETIC RESONANCE IMAGING
     Dosage: UNK
     Dates: start: 20060720
  8. EPOGEN [Concomitant]
     Active Substance: ERYTHROPOIETIN
  9. FOLIC ACID W/VITAMIN B NOS [Concomitant]
  10. CARDIZEM CD [Concomitant]
     Active Substance: DILTIAZEM HYDROCHLORIDE
  11. PROHANCE [Suspect]
     Active Substance: GADOTERIDOL
     Indication: NUCLEAR MAGNETIC RESONANCE IMAGING
     Dosage: UNK
     Dates: start: 20070925
  12. SOLU-CORTEF [Concomitant]
     Active Substance: HYDROCORTISONE SODIUM SUCCINATE
  13. LOPRESSOR [Concomitant]
     Active Substance: METOPROLOL TARTRATE
  14. HEPARIN [Concomitant]
     Active Substance: HEPARIN SODIUM
  15. PHOSLO [Concomitant]
     Active Substance: CALCIUM ACETATE
  16. VANCOMYCIN [Concomitant]
     Active Substance: VANCOMYCIN
  17. MAGNEVIST [Suspect]
     Active Substance: GADOPENTETATE DIMEGLUMINE
     Indication: NUCLEAR MAGNETIC RESONANCE IMAGING
     Dosage: 28 ML, ONCE
     Dates: start: 20041220, end: 20041220
  18. NEURONTIN [Concomitant]
     Active Substance: GABAPENTIN
  19. VENOFER [Concomitant]
     Active Substance: IRON SUCROSE
  20. RENAPHRO [Concomitant]
  21. MAGNEVIST [Suspect]
     Active Substance: GADOPENTETATE DIMEGLUMINE
     Indication: NUCLEAR MAGNETIC RESONANCE IMAGING
     Dosage: 30 ML, ONCE
     Route: 042
     Dates: start: 20050404, end: 20050404
  22. MULTIHANCE [Suspect]
     Active Substance: GADOBENATE DIMEGLUMINE
     Indication: NUCLEAR MAGNETIC RESONANCE IMAGING
     Dosage: 20 ML, UNK
     Dates: start: 20060202, end: 20060202
  23. RENAGEL [Concomitant]
     Active Substance: SEVELAMER HYDROCHLORIDE
  24. GENTAMYCIN [Concomitant]
     Active Substance: GENTAMICIN
  25. COUMADIN [Concomitant]
     Active Substance: WARFARIN SODIUM
  26. ARANESP [Concomitant]
     Active Substance: DARBEPOETIN ALFA
  27. PROAMATINE [Concomitant]
     Active Substance: MIDODRINE HYDROCHLORIDE

REACTIONS (15)
  - Nephrogenic systemic fibrosis [Not Recovered/Not Resolved]
  - Mobility decreased [Not Recovered/Not Resolved]
  - Limb mass [Not Recovered/Not Resolved]
  - Injury [Not Recovered/Not Resolved]
  - Anxiety [Not Recovered/Not Resolved]
  - General physical health deterioration [Not Recovered/Not Resolved]
  - Skin discolouration [Not Recovered/Not Resolved]
  - Induration [Not Recovered/Not Resolved]
  - Pruritus [Not Recovered/Not Resolved]
  - Fibrosis [Not Recovered/Not Resolved]
  - Unevaluable event [Not Recovered/Not Resolved]
  - Pain [Not Recovered/Not Resolved]
  - Emotional distress [Not Recovered/Not Resolved]
  - Oedema peripheral [Not Recovered/Not Resolved]
  - Skin hypertrophy [Not Recovered/Not Resolved]

NARRATIVE: CASE EVENT DATE: 200704
